FAERS Safety Report 7946255-8 (Version None)
Quarter: 2011Q4

REPORT INFORMATION
  Report Type: 
  Country: None (occurrence: None)
  Receive Date: 20111129
  Receipt Date: 20111119
  Transmission Date: 20120403
  Serious: Yes (Disabling, Other)
  Sender: FDA-Public Use
  Company Number: DE-TEVA-287850GER

PATIENT
  Sex: Female
  Weight: 55 kg

DRUGS (1)
  1. DOXYCYCLINE [Suspect]
     Indication: INFLUENZA
     Dosage: 200 MILLIGRAM;
     Route: 048
     Dates: start: 20110101

REACTIONS (4)
  - PAROSMIA [None]
  - AGEUSIA [None]
  - ANOSMIA [None]
  - DYSGEUSIA [None]
